FAERS Safety Report 14410794 (Version 3)
Quarter: 2018Q1

REPORT INFORMATION
  Report Type: Report from Study
  Country: US (occurrence: US)
  Receive Date: 20180119
  Receipt Date: 20180302
  Transmission Date: 20180509
  Serious: Yes (Death, Hospitalization, Other)
  Sender: FDA-Public Use
  Company Number: US-GILEAD-2018-0315837

PATIENT
  Age: 82 Year
  Sex: Female

DRUGS (17)
  1. CLOBETASOL [Concomitant]
     Active Substance: CLOBETASOL
  2. AMBRISENTAN [Suspect]
     Active Substance: AMBRISENTAN
     Indication: PULMONARY ARTERIAL HYPERTENSION
     Dosage: 5 MG, QD
     Route: 065
     Dates: start: 20130705
  3. REMODULIN [Concomitant]
     Active Substance: TREPROSTINIL
  4. FUROSEMIDE. [Concomitant]
     Active Substance: FUROSEMIDE
  5. LEVOTHYROXIN [Concomitant]
     Active Substance: LEVOTHYROXINE
  6. METOLAZONE. [Concomitant]
     Active Substance: METOLAZONE
  7. FLUOCINONIDE. [Concomitant]
     Active Substance: FLUOCINONIDE
  8. SILDENAFIL. [Concomitant]
     Active Substance: SILDENAFIL
  9. MULTIVITAMIN                       /00097801/ [Concomitant]
     Active Substance: VITAMINS
  10. VITAMIN D [Concomitant]
     Active Substance: CHOLECALCIFEROL
  11. ALLOPURINOL. [Concomitant]
     Active Substance: ALLOPURINOL
  12. VITAMIN C [Concomitant]
     Active Substance: ASCORBIC ACID
  13. FISH OIL [Concomitant]
     Active Substance: FISH OIL
  14. WARFARIN [Concomitant]
     Active Substance: WARFARIN
  15. CALCIUM + MAGNESIUM [Concomitant]
  16. IMODIUM [Concomitant]
     Active Substance: LOPERAMIDE HYDROCHLORIDE
  17. POTASSIUM [Concomitant]
     Active Substance: POTASSIUM

REACTIONS (3)
  - Dyspnoea [Recovering/Resolving]
  - Death [Fatal]
  - Condition aggravated [Not Recovered/Not Resolved]

NARRATIVE: CASE EVENT DATE: 20180103
